FAERS Safety Report 8971638 (Version 4)
Quarter: 2013Q3

REPORT INFORMATION
  Report Type: Spontaneous
  Country: US (occurrence: US)
  Receive Date: 20121217
  Receipt Date: 20130703
  Transmission Date: 20140515
  Serious: Yes (Other)
  Sender: FDA-Public Use
  Company Number: US-PFIZER INC-2012314742

PATIENT
  Sex: Female

DRUGS (2)
  1. XALATAN [Suspect]
     Dosage: 50 UG/ML, UNK
  2. PROTONIX [Suspect]
     Dosage: UNK

REACTIONS (2)
  - Ankle fracture [Unknown]
  - Fall [Unknown]
